FAERS Safety Report 20917384 (Version 1)
Quarter: 2022Q2

REPORT INFORMATION
  Report Type: Spontaneous
  Country: DK (occurrence: DK)
  Receive Date: 20220606
  Receipt Date: 20220606
  Transmission Date: 20220721
  Serious: Yes (Death, Hospitalization)
  Sender: FDA-Public Use
  Company Number: None

PATIENT
  Age: 44 Year
  Sex: Female

DRUGS (2)
  1. DOXORUBICIN [Suspect]
     Active Substance: DOXORUBICIN
     Indication: Bone cancer
     Dosage: DOSAGE: UNKNOWN INTERVAL. 64MG IN 82ML INFUSION. STRENGTH: 2MG/ML ,16, UNIT DOSE : 64 MG ,
     Route: 042
     Dates: start: 20200813
  2. CISPLATIN [Concomitant]
     Active Substance: CISPLATIN
     Indication: Bone cancer
     Dosage: DOSAGE: INTERVAL UNKNOWN?STRENGTH: 1MG/ML , 16 , UNIT DOSE : 85 MG
     Route: 042
     Dates: start: 20200813

REACTIONS (8)
  - Retroperitoneal haematoma [Fatal]
  - Renal failure [Fatal]
  - Organ failure [Fatal]
  - Pain [Fatal]
  - Cardiac failure [Fatal]
  - Respiratory failure [Fatal]
  - Dyspnoea [Fatal]
  - Arterial haemorrhage [Fatal]

NARRATIVE: CASE EVENT DATE: 20210201
